FAERS Safety Report 9089777 (Version 1)
Quarter: 2013Q1

REPORT INFORMATION
  Report Type: Spontaneous
  Country: CH (occurrence: CH)
  Receive Date: 20130201
  Receipt Date: 20130201
  Transmission Date: 20140127
  Serious: Yes (Other)
  Sender: FDA-Public Use
  Company Number: CH-ASTRAZENECA-2013SE05659

PATIENT
  Age: 33 Year
  Sex: Female

DRUGS (7)
  1. SEROQUEL [Suspect]
     Route: 048
     Dates: end: 201204
  2. SEROQUEL [Suspect]
     Route: 048
     Dates: start: 20120926, end: 20121005
  3. SEROQUEL [Suspect]
     Route: 048
     Dates: start: 20121005
  4. RISPERDAL [Suspect]
     Route: 048
     Dates: start: 20120709
  5. RISPERDAL [Suspect]
     Route: 048
     Dates: start: 20120730
  6. RISPERDAL [Suspect]
     Route: 048
     Dates: start: 201208, end: 20120926
  7. SEROPRAM [Suspect]
     Route: 048
     Dates: start: 20120901, end: 20120926

REACTIONS (1)
  - Exposure during pregnancy [Unknown]
